FAERS Safety Report 14543957 (Version 1)
Quarter: 2018Q1

REPORT INFORMATION
  Report Type: Spontaneous
  Country: US (occurrence: US)
  Receive Date: 20180216
  Receipt Date: 20180216
  Transmission Date: 20180509
  Serious: Yes (Other)
  Sender: FDA-Public Use
  Company Number: US-BIOMARINAP-US-2018-117117

PATIENT
  Age: 20 Year
  Sex: Male
  Weight: 31 kg

DRUGS (1)
  1. VIMIZIM [Suspect]
     Active Substance: ELOSULFASE ALFA
     Indication: PRODUCT USED FOR UNKNOWN INDICATION
     Dosage: 60 MG, QW
     Route: 042

REACTIONS (3)
  - Tachycardia [Unknown]
  - Anxiety [Unknown]
  - Feeling jittery [Unknown]

NARRATIVE: CASE EVENT DATE: 20180209
